FAERS Safety Report 18552254 (Version 1)
Quarter: 2020Q4

REPORT INFORMATION
  Report Type: Spontaneous
  Country: ES (occurrence: ES)
  Receive Date: 20201127
  Receipt Date: 20201127
  Transmission Date: 20210114
  Serious: Yes (Hospitalization, Other)
  Sender: FDA-Public Use
  Company Number: ES-AUROBINDO-AUR-APL-2020-058487

PATIENT
  Age: 79 Year
  Sex: Male

DRUGS (1)
  1. CAPECITABINE FILM COATED TABLET [Suspect]
     Active Substance: CAPECITABINE
     Indication: CHOLANGIOCARCINOMA
     Dosage: UNK
     Route: 065

REACTIONS (3)
  - Metastases to lung [Unknown]
  - Intentional product use issue [Unknown]
  - Off label use [Unknown]
